FAERS Safety Report 8435532-2 (Version None)
Quarter: 2012Q2

REPORT INFORMATION
  Report Type: 
  Country: None (occurrence: None)
  Receive Date: 20120608
  Receipt Date: 20120608
  Transmission Date: 20120825
  Serious: No
  Sender: FDA-Public Use
  Company Number: None

PATIENT
  Age: 38 Year
  Sex: Male
  Weight: 120 kg

DRUGS (1)
  1. FLUOXETINE [Suspect]
     Indication: MIGRAINE PROPHYLAXIS
     Dosage: 40 MG EVERY DAY PO
     Route: 048
     Dates: start: 20111102, end: 20111105

REACTIONS (9)
  - CHEST DISCOMFORT [None]
  - HYPERTENSION [None]
  - RASH [None]
  - ERYTHEMA [None]
  - PALPITATIONS [None]
  - MUSCLE TIGHTNESS [None]
  - ANXIETY [None]
  - TACHYCARDIA [None]
  - BODY TEMPERATURE INCREASED [None]
